FAERS Safety Report 13663327 (Version 1)
Quarter: 2017Q2

REPORT INFORMATION
  Report Type: Spontaneous
  Country: US (occurrence: US)
  Receive Date: 20170619
  Receipt Date: 20170619
  Transmission Date: 20170830
  Serious: No
  Sender: FDA-Public Use
  Company Number: US-HETERO LABS LTD-2022198

PATIENT
  Sex: Female

DRUGS (2)
  1. ESOMEPRAZOLE [Suspect]
     Active Substance: ESOMEPRAZOLE
     Indication: PRODUCT USED FOR UNKNOWN INDICATION
     Route: 048
     Dates: start: 201603
  2. ESOMEPRAZOLE [Suspect]
     Active Substance: ESOMEPRAZOLE
     Route: 048
     Dates: start: 201606

REACTIONS (5)
  - Confusional state [Unknown]
  - Loss of personal independence in daily activities [Unknown]
  - Thinking abnormal [Unknown]
  - Memory impairment [Unknown]
  - Product commingling [Unknown]

NARRATIVE: CASE EVENT DATE: 201603
